FAERS Safety Report 10480671 (Version 1)
Quarter: 2014Q3

REPORT INFORMATION
  Report Type: Spontaneous
  Country: US (occurrence: None)
  Receive Date: 20140904
  Receipt Date: 20140904
  Transmission Date: 20150326
  Serious: No
  Sender: FDA-Public Use
  Company Number: 228153LEO

PATIENT
  Sex: Male

DRUGS (1)
  1. PICATO [Suspect]
     Active Substance: INGENOL MEBUTATE
     Indication: ACTINIC KERATOSIS
     Dosage: 11/12/2014 - 11/14/2014

REACTIONS (6)
  - Eye irritation [None]
  - Photophobia [None]
  - Lacrimation increased [None]
  - Visual impairment [None]
  - Scleral discolouration [None]
  - Accidental exposure to product [None]

NARRATIVE: CASE EVENT DATE: 2014
